FAERS Safety Report 5874961-8 (Version None)
Quarter: 2008Q3

REPORT INFORMATION
  Report Type: 
  Country: None (occurrence: None)
  Receive Date: 20080909
  Receipt Date: 20080904
  Transmission Date: 20090109
  Serious: Yes (Hospitalization)
  Sender: FDA-Public Use
  Company Number: JP-BAYER-200811557BYL

PATIENT
  Age: 68 Year
  Sex: Male
  Weight: 53 kg

DRUGS (4)
  1. NEXAVAR [Suspect]
     Indication: RENAL CELL CARCINOMA STAGE IV
     Route: 048
     Dates: start: 20080611, end: 20080620
  2. NEXAVAR [Suspect]
     Route: 048
     Dates: start: 20080621, end: 20080628
  3. NEXAVAR [Suspect]
     Route: 048
     Dates: start: 20080629, end: 20080710
  4. NEXAVAR [Suspect]
     Route: 048
     Dates: start: 20080725

REACTIONS (2)
  - HEPATIC FUNCTION ABNORMAL [None]
  - PALMAR-PLANTAR ERYTHRODYSAESTHESIA SYNDROME [None]
